FAERS Safety Report 6805124-7 (Version None)
Quarter: 2010Q2

REPORT INFORMATION
  Report Type: 
  Country: None (occurrence: None)
  Receive Date: 20100628
  Receipt Date: 20070906
  Transmission Date: 20101027
  Serious: No
  Sender: FDA-Public Use
  Company Number: US-PFIZER INC-2007075925

PATIENT
  Sex: Male
  Weight: 76.363 kg

DRUGS (2)
  1. RELPAX [Suspect]
     Indication: MIGRAINE
     Dates: start: 20070828, end: 20070905
  2. SYNTHROID [Concomitant]
     Indication: THYROID DISORDER

REACTIONS (4)
  - ABDOMINAL PAIN UPPER [None]
  - DIZZINESS [None]
  - RETCHING [None]
  - VOMITING [None]
